FAERS Safety Report 24624523 (Version 4)
Quarter: 2025Q3

REPORT INFORMATION
  Report Type: Spontaneous
  Country: JP (occurrence: JP)
  Receive Date: 20241115
  Receipt Date: 20250810
  Transmission Date: 20251021
  Serious: Yes (Death, Other)
  Sender: ALEXION PHARMACEUTICALS
  Company Number: JP-ASTRAZENECA-240124231_064320_P_1

PATIENT
  Age: 86 Year
  Sex: Male
  Weight: 57 kg

DRUGS (8)
  1. ANDEXXA [Suspect]
     Active Substance: ANDEXANET ALFA
     Indication: Traumatic subarachnoid haemorrhage
     Dates: start: 20240803, end: 20240803
  2. ANDEXXA [Suspect]
     Active Substance: ANDEXANET ALFA
  3. EDOXABAN TOSYLATE [Suspect]
     Active Substance: EDOXABAN TOSYLATE
     Indication: Atrial fibrillation
     Route: 065
  4. RABEPRAZOLE SODIUM [Suspect]
     Active Substance: RABEPRAZOLE SODIUM
     Route: 065
  5. FURSULTIAMINE\HYDROXOCOBALAMIN ACETATE\PYRIDOXAL PHOSPHATE\RIBOFLAVIN [Suspect]
     Active Substance: FURSULTIAMINE\HYDROXOCOBALAMIN ACETATE\PYRIDOXAL PHOSPHATE\RIBOFLAVIN
     Indication: Vitamin supplementation
  6. AZOSEMIDE [Suspect]
     Active Substance: AZOSEMIDE
     Indication: Cardiac failure chronic
     Route: 065
  7. EDOXABAN TOSYLATE [Concomitant]
     Active Substance: EDOXABAN TOSYLATE
  8. EDOXABAN TOSYLATE [Concomitant]
     Active Substance: EDOXABAN TOSYLATE

REACTIONS (1)
  - Traumatic subarachnoid haemorrhage [Fatal]

NARRATIVE: CASE EVENT DATE: 20240803
